FAERS Safety Report 4416802-1 (Version None)
Quarter: 2004Q3

REPORT INFORMATION
  Report Type: 
  Country: None (occurrence: None)
  Receive Date: 20040802
  Receipt Date: 20040722
  Transmission Date: 20050211
  Serious: Yes (Other)
  Sender: FDA-Public Use
  Company Number: 20387

PATIENT

DRUGS (2)
  1. NIASPAN [Suspect]
  2. LESCOL [Concomitant]

REACTIONS (1)
  - RHABDOMYOLYSIS [None]
